FAERS Safety Report 8094643-4 (Version None)
Quarter: 2012Q1

REPORT INFORMATION
  Report Type: 
  Country: None (occurrence: None)
  Receive Date: 20120131
  Receipt Date: 20111214
  Transmission Date: 20120608
  Serious: No
  Sender: FDA-Public Use
  Company Number: US-ABBOTT-11P-163-0804616-00

PATIENT
  Sex: Female
  Weight: 51.302 kg

DRUGS (4)
  1. CREON [Suspect]
     Dosage: DAILY DOSE: 72000, AS USED: 24000, FREQUENCY: THREE TIMES A DAY
     Route: 065
     Dates: start: 20110501
  2. PANTOPRAZOLE SODIUM [Concomitant]
     Indication: GASTRIC ULCER
  3. CREON [Suspect]
     Indication: PANCREATIC INSUFFICIENCY
     Dosage: 4 CAPSULES PER MEAL
     Route: 048
     Dates: start: 20100401
  4. INSULIN [Concomitant]
     Indication: DIABETES MELLITUS

REACTIONS (1)
  - WEIGHT DECREASED [None]
